FAERS Safety Report 5426662-8 (Version None)
Quarter: 2007Q3

REPORT INFORMATION
  Report Type: 
  Country: None (occurrence: None)
  Receive Date: 20070731
  Receipt Date: 20070405
  Transmission Date: 20080115
  Serious: No
  Sender: FDA-Public Use
  Company Number: 2006PV012799

PATIENT
  Age: 37 Year
  Sex: Male
  Weight: 129.3 kg

DRUGS (9)
  1. EXENATIDE (EXENATIDE) PEN, DISPOSABLE [Suspect]
     Indication: TYPE 2 DIABETES MELLITUS
     Dosage: 5 UG, 2/D, SUBCUTANEOUS; 10 UG, 2/D,  10 UG, 2/D,  5 UG, 2/D,
     Route: 058
     Dates: start: 20060101, end: 20060101
  2. EXENATIDE (EXENATIDE) PEN, DISPOSABLE [Suspect]
     Indication: TYPE 2 DIABETES MELLITUS
     Dosage: 5 UG, 2/D, SUBCUTANEOUS; 10 UG, 2/D,  10 UG, 2/D,  5 UG, 2/D,
     Route: 058
     Dates: start: 20060101
  3. EXENATIDE (EXENATIDE) PEN, DISPOSABLE [Suspect]
     Indication: TYPE 2 DIABETES MELLITUS
     Dosage: 5 UG, 2/D, SUBCUTANEOUS; 10 UG, 2/D,  10 UG, 2/D,  5 UG, 2/D,
     Route: 058
     Dates: start: 20060101
  4. EXENATIDE (EXENATIDE) PEN, DISPOSABLE [Suspect]
     Indication: TYPE 2 DIABETES MELLITUS
     Dosage: 5 UG, 2/D, SUBCUTANEOUS; 10 UG, 2/D,  10 UG, 2/D,  5 UG, 2/D,
     Route: 058
     Dates: start: 20060421
  5. AVANDARYL [Concomitant]
  6. METFORMIN HCL [Concomitant]
  7. HUMALOG [Concomitant]
  8. HUMALOG [Concomitant]
  9. AVANDIA [Concomitant]

REACTIONS (4)
  - BLOOD GLUCOSE DECREASED [None]
  - BLOOD GLUCOSE INCREASED [None]
  - NAUSEA [None]
  - SOMNOLENCE [None]
